FAERS Safety Report 4728468-1 (Version None)
Quarter: 2005Q3

REPORT INFORMATION
  Report Type: 
  Country: None (occurrence: None)
  Receive Date: 20050727
  Receipt Date: 20050714
  Transmission Date: 20060218
  Serious: Yes (Hospitalization)
  Sender: FDA-Public Use
  Company Number: 2005BI008325

PATIENT
  Age: 40 Year
  Sex: Female

DRUGS (12)
  1. AVONEX [Suspect]
     Indication: MULTIPLE SCLEROSIS
     Dosage: 30 UG;QW; IM
     Route: 030
     Dates: start: 20000118
  2. AVONEX [Suspect]
     Indication: MULTIPLE SCLEROSIS
     Dosage: 30 UG;QW; IM
     Route: 030
  3. AVONEX [Suspect]
     Indication: MULTIPLE SCLEROSIS
     Dosage: 30 UG;QW;IM
     Route: 030
  4. PROZAC [Concomitant]
  5. TRAZADONE [Concomitant]
  6. NEURONTIN [Concomitant]
  7. DITROPAN [Concomitant]
  8. METHADONE HCL [Concomitant]
  9. FLEXERIL [Concomitant]
  10. MOTRIN [Concomitant]
  11. ^SINUS MEDICATION^ [Concomitant]
  12. .. OV (MULTIPLE ORAL VITAMIN) [Concomitant]

REACTIONS (5)
  - CONDITION AGGRAVATED [None]
  - INTERVERTEBRAL DISC DISORDER [None]
  - INTERVERTEBRAL DISC PROTRUSION [None]
  - OVARIAN CANCER [None]
  - PAIN [None]
